FAERS Safety Report 4699056-0 (Version None)
Quarter: 2005Q2

REPORT INFORMATION
  Report Type: 
  Country: None (occurrence: None)
  Receive Date: 20050622
  Receipt Date: 20050622
  Transmission Date: 20051028
  Serious: Yes (Other)
  Sender: FDA-Public Use
  Company Number: None

PATIENT
  Age: 44 Year
  Sex: Female
  Weight: 53.0709 kg

DRUGS (5)
  1. CYMBALTA [Suspect]
     Indication: ANXIETY
     Dosage: 1 TAB/DAILY BY MOUTH
     Route: 048
  2. CYMBALTA [Suspect]
     Indication: MENOPAUSE
     Dosage: 1 TAB/DAILY BY MOUTH
     Route: 048
  3. CYMBALTA [Suspect]
     Indication: PREMENSTRUAL SYNDROME
     Dosage: 1 TAB/DAILY BY MOUTH
     Route: 048
  4. ADDERALL XR 20 [Suspect]
     Indication: NARCOLEPSY
     Dosage: 1 TAB/DAILY BY MOUTH
     Route: 048
  5. RANITIDINE [Concomitant]

REACTIONS (3)
  - FATIGUE [None]
  - FEELING ABNORMAL [None]
  - MIGRAINE [None]
